FAERS Safety Report 5444085-2 (Version None)
Quarter: 2007Q3

REPORT INFORMATION
  Report Type: 
  Country: None (occurrence: None)
  Receive Date: 20070831
  Receipt Date: 20070829
  Transmission Date: 20080115
  Serious: Yes (Death, Life-Threatening, Hospitalization, Other)
  Sender: FDA-Public Use
  Company Number: PAR_1455_2007

PATIENT
  Age: 49 Year
  Sex: Male

DRUGS (2)
  1. LISINOPRIL [Suspect]
     Indication: HYPERTENSION
     Dosage: 10 MG
  2. HYDROCHLOROTHIAZIDE [Suspect]
     Indication: HYPERTENSION
     Dosage: 12.5 MG

REACTIONS (9)
  - ACUTE RESPIRATORY DISTRESS SYNDROME [None]
  - CREPITATIONS [None]
  - ECCHYMOSIS [None]
  - HAEMOGLOBIN DECREASED [None]
  - HEART RATE INCREASED [None]
  - MULTI-ORGAN FAILURE [None]
  - PANCREATIC HAEMORRHAGE [None]
  - PANCREATITIS NECROTISING [None]
  - SHOCK [None]
